FAERS Safety Report 5345796-X (Version None)
Quarter: 2007Q2

REPORT INFORMATION
  Report Type: 
  Country: None (occurrence: None)
  Receive Date: 20070430
  Receipt Date: 20070215
  Transmission Date: 20071010
  Serious: No
  Sender: FDA-Public Use
  Company Number: 260882

PATIENT
  Age: 51 Year
  Sex: Male
  Weight: 145.1 kg

DRUGS (8)
  1. LEVEMIR [Suspect]
     Indication: INSULIN-REQUIRING TYPE II DIABETES MELLITUS
     Dosage: SUBCUTANEOUS
     Route: 058
     Dates: start: 20070102
  2. LANTUS [Concomitant]
  3. GLUCOPHAGE /00082701/ (METFORMIN) TABLET [Concomitant]
  4. AMARYL (BLIMEPIRIDE) CAPSULE [Concomitant]
  5. PREVACID [Concomitant]
  6. CARDIZEM /00489701/(DILTIAZEM) [Concomitant]
  7. AVAPRO [Concomitant]
  8. ATENOLOL [Concomitant]

REACTIONS (1)
  - INJECTION SITE RASH [None]
